FAERS Safety Report 19075575 (Version 1)
Quarter: 2021Q1

REPORT INFORMATION
  Report Type: Spontaneous
  Country: FR (occurrence: FR)
  Receive Date: 20210330
  Receipt Date: 20210330
  Transmission Date: 20210420
  Serious: Yes (Hospitalization)
  Sender: FDA-Public Use
  Company Number: FR-PFIZER INC-2021309245

PATIENT
  Age: 48 Year
  Sex: Male
  Weight: 83 kg

DRUGS (8)
  1. METHOTREXATE. [Suspect]
     Active Substance: METHOTREXATE
     Indication: B-CELL LYMPHOMA
     Dosage: 15 MG, SINGLE
     Route: 037
     Dates: start: 20210224, end: 20210224
  2. DOXORUBICINE TEVA [Suspect]
     Active Substance: DOXORUBICIN
     Indication: B-CELL LYMPHOMA
     Dosage: 100 MG, SINGLE
     Route: 042
     Dates: start: 20210224, end: 20210224
  3. VINCRISTINE SULFATE. [Suspect]
     Active Substance: VINCRISTINE SULFATE
     Indication: B-CELL LYMPHOMA
     Dosage: 2 MG, SINGLE
     Route: 041
     Dates: start: 20210224, end: 20210224
  4. ENDOXAN [CYCLOPHOSPHAMIDE MONOHYDRATE] [Suspect]
     Active Substance: CYCLOPHOSPHAMIDE
     Indication: B-CELL LYMPHOMA
     Dosage: 1500 MG, SINGLE
     Route: 041
     Dates: start: 20210224, end: 20210224
  5. GAZYVARO [Suspect]
     Active Substance: OBINUTUZUMAB
     Indication: B-CELL LYMPHOMA
     Dosage: 100 MG
     Route: 041
     Dates: start: 20210223, end: 20210223
  6. PREDNISOLONE. [Suspect]
     Active Substance: PREDNISOLONE
     Indication: B-CELL LYMPHOMA
     Dosage: 40 MG, SINGLE
     Route: 037
     Dates: start: 20210224, end: 20210224
  7. SOLU?MEDROL [Suspect]
     Active Substance: METHYLPREDNISOLONE SODIUM SUCCINATE
     Indication: B-CELL LYMPHOMA
     Dosage: 80 MG, 1X/DAY
     Route: 042
     Dates: start: 20210223, end: 20210228
  8. GAZYVARO [Suspect]
     Active Substance: OBINUTUZUMAB
     Dosage: 900 MG
     Route: 041
     Dates: start: 20210224, end: 20210224

REACTIONS (3)
  - Disorientation [Recovered/Resolved]
  - Agitation [Recovered/Resolved]
  - Confusional state [Recovered/Resolved]

NARRATIVE: CASE EVENT DATE: 20210302
